FAERS Safety Report 5985649-7 (Version None)
Quarter: 2008Q4

REPORT INFORMATION
  Report Type: 
  Country: None (occurrence: None)
  Receive Date: 20081208
  Receipt Date: 20080327
  Transmission Date: 20090506
  Serious: No
  Sender: FDA-Public Use
  Company Number: US-AMGEN-KDL271681

PATIENT
  Sex: Female

DRUGS (3)
  1. ENBREL [Suspect]
     Indication: RHEUMATOID ARTHRITIS
     Route: 058
     Dates: start: 20060321
  2. METHOTREXATE [Concomitant]
     Route: 058
     Dates: start: 20051001
  3. PLAQUENIL [Concomitant]
     Dates: start: 20040101

REACTIONS (14)
  - ARTHRALGIA [None]
  - BUNION [None]
  - DIABETIC RETINOPATHY [None]
  - GASTRITIS [None]
  - GENITAL HAEMORRHAGE [None]
  - INCONTINENCE [None]
  - INFLUENZA LIKE ILLNESS [None]
  - INJECTION SITE PAIN [None]
  - JOINT RANGE OF MOTION DECREASED [None]
  - JOINT SWELLING [None]
  - LYMPH NODE PALPABLE [None]
  - MENORRHAGIA [None]
  - MENSTRUATION IRREGULAR [None]
  - MUSCULOSKELETAL PAIN [None]
